FAERS Safety Report 8282473-X (Version None)
Quarter: 2012Q2

REPORT INFORMATION
  Report Type: 
  Country: None (occurrence: None)
  Receive Date: 20120413
  Receipt Date: 20120409
  Transmission Date: 20120825
  Serious: Yes (Other)
  Sender: FDA-Public Use
  Company Number: GR-SANOFI-AVENTIS-2012SA024747

PATIENT

DRUGS (1)
  1. PLAVIX [Suspect]
     Indication: ATRIAL FIBRILLATION
     Route: 065

REACTIONS (2)
  - MYELODYSPLASTIC SYNDROME [None]
  - THROMBOCYTOPENIA [None]
